FAERS Safety Report 6368900-3 (Version None)
Quarter: 2009Q3

REPORT INFORMATION
  Report Type: 
  Country: None (occurrence: None)
  Receive Date: 20090918
  Receipt Date: 20090918
  Transmission Date: 20100115
  Serious: Yes (Other)
  Sender: FDA-Public Use
  Company Number: None

PATIENT
  Age: 39 Year
  Sex: Female
  Weight: 99.7913 kg

DRUGS (1)
  1. CYMBALTA [Suspect]
     Indication: DEPRESSION
     Dates: start: 20060615, end: 20090905

REACTIONS (5)
  - DIZZINESS [None]
  - INFLUENZA LIKE ILLNESS [None]
  - IRRITABILITY [None]
  - NAUSEA [None]
  - PARAESTHESIA [None]
